FAERS Safety Report 19024543 (Version 1)
Quarter: 2021Q1

REPORT INFORMATION
  Report Type: Spontaneous
  Country: JP (occurrence: JP)
  Receive Date: 20210317
  Receipt Date: 20210317
  Transmission Date: 20210420
  Serious: Yes (Death)
  Sender: FDA-Public Use
  Company Number: JP-ROCHE-2786137

PATIENT
  Age: 70 Year
  Sex: Male

DRUGS (2)
  1. DECADRON [Concomitant]
     Active Substance: DEXAMETHASONE
     Indication: COVID-19
     Route: 065
     Dates: start: 20201207, end: 20210203
  2. ACTEMRA [Suspect]
     Active Substance: TOCILIZUMAB
     Indication: COVID-19
     Dosage: DOSE INTERVAL UNCERTAINTY
     Route: 058
     Dates: start: 20210109, end: 20210114

REACTIONS (3)
  - Septic shock [Fatal]
  - Small intestinal perforation [Fatal]
  - Off label use [Unknown]

NARRATIVE: CASE EVENT DATE: 20210109
